FAERS Safety Report 4359871-X (Version None)
Quarter: 2004Q2

REPORT INFORMATION
  Report Type: 
  Country: None (occurrence: None)
  Receive Date: 20040513
  Receipt Date: 20040504
  Transmission Date: 20050107
  Serious: No
  Sender: FDA-Public Use
  Company Number: 2004PK00802

PATIENT
  Age: 41 Year
  Sex: Female
  Weight: 76 kg

DRUGS (2)
  1. SEROQUEL [Suspect]
     Indication: ANXIETY
     Dosage: 200 MG DAILY PO
     Route: 048
     Dates: start: 20030914
  2. INTERFERON [Concomitant]

REACTIONS (6)
  - CONSTIPATION [None]
  - DRUG WITHDRAWAL SYNDROME [None]
  - NIGHTMARE [None]
  - PSYCHOMOTOR AGITATION [None]
  - RESTLESSNESS [None]
  - TIC [None]
